FAERS Safety Report 7275832 (Version 3)
Quarter: 2014Q2

REPORT INFORMATION
  Report Type: Spontaneous
  Country: JP (occurrence: JP)
  Receive Date: 20100211
  Receipt Date: 20140411
  Transmission Date: 20141212
  Serious: Yes (Death, Hospitalization)
  Sender: FDA-Public Use
  Company Number: JP-ROCHE-647079

PATIENT
  Age: 70 None
  Sex: Male
  Weight: 62 kg

DRUGS (5)
  1. AVASTIN [Suspect]
     Indication: COLON CANCER
     Route: 042
     Dates: start: 20090120, end: 20090218
  2. IRINOTECAN HYDROCHLORIDE [Concomitant]
     Indication: COLON CANCER METASTATIC
     Route: 042
     Dates: start: 20090120, end: 20090218
  3. 5-FLUOROURACIL [Concomitant]
     Indication: COLON CANCER METASTATIC
     Route: 040
     Dates: start: 20090120, end: 20090218
  4. 5-FLUOROURACIL [Concomitant]
     Route: 041
     Dates: start: 20090120, end: 200902
  5. LEVOFOLINATE [Concomitant]
     Route: 042
     Dates: start: 20090120, end: 20090218

REACTIONS (3)
  - Colon cancer [Fatal]
  - Ileal perforation [Not Recovered/Not Resolved]
  - Peritonitis [Recovering/Resolving]
